FAERS Safety Report 7144498 (Version 4)
Quarter: 2020Q3

REPORT INFORMATION
  Report Type: Report from Study
  Country: PL (occurrence: PL)
  Receive Date: 20091009
  Receipt Date: 20100113
  Transmission Date: 20201104
  Serious: Yes (Hospitalization)
  Sender: FDA-Public Use
  Company Number: PL-WYE-H11425009

PATIENT
  Age: 44 Year
  Sex: Male
  Weight: 66 kg

DRUGS (8)
  1. OMEPRAZOLE. [Concomitant]
     Active Substance: OMEPRAZOLE
     Indication: PROPHYLAXIS AGAINST GASTROINTESTINAL ULCER
     Dosage: UNKNOWN
     Dates: start: 20091005
  2. SODIUM CHLORIDE. [Concomitant]
     Active Substance: SODIUM CHLORIDE
     Indication: DEHYDRATION
     Dosage: UNKNOWN
     Dates: start: 20091005
  3. ELECTROLYTE SOLUTIONS [Concomitant]
     Dosage: UNKNOWN
     Dates: start: 20091005
  4. TEMSIROLIMUS. [Suspect]
     Active Substance: TEMSIROLIMUS
     Indication: RENAL CELL CARCINOMA
     Route: 042
     Dates: start: 20090727, end: 20091005
  5. PARACETAMOL [Concomitant]
     Active Substance: ACETAMINOPHEN
     Indication: PYREXIA
     Dosage: UNKNOWN
     Dates: start: 20091005
  6. TEMSIROLIMUS. [Suspect]
     Active Substance: TEMSIROLIMUS
     Route: 042
     Dates: start: 20091009
  7. BEVACIZUMAB. [Suspect]
     Active Substance: BEVACIZUMAB
     Indication: RENAL CELL CARCINOMA
     Route: 042
     Dates: start: 20090727, end: 20091005
  8. BEVACIZUMAB. [Suspect]
     Active Substance: BEVACIZUMAB
     Dosage: NOT PROVIDED
     Route: 042
     Dates: start: 20091009

REACTIONS (2)
  - Diarrhoea [None]
  - Anaemia [Recovered/Resolved]

NARRATIVE: CASE EVENT DATE: 20091005
